FAERS Safety Report 4728376-6 (Version None)
Quarter: 2005Q3

REPORT INFORMATION
  Report Type: 
  Country: None (occurrence: None)
  Receive Date: 20050727
  Receipt Date: 20050715
  Transmission Date: 20060218
  Serious: Yes (Hospitalization, Other)
  Sender: FDA-Public Use
  Company Number: 2005103466

PATIENT
  Sex: Female

DRUGS (3)
  1. CELEBREX [Suspect]
     Indication: PAIN
     Dosage: (200 MG,)
  2. IBUPROFEN [Suspect]
     Indication: ILL-DEFINED DISORDER
  3. ADVIL [Suspect]
     Indication: ILL-DEFINED DISORDER

REACTIONS (5)
  - DRUG INEFFECTIVE [None]
  - HIP SURGERY [None]
  - KNEE ARTHROPLASTY [None]
  - PAIN [None]
  - SYSTEMIC LUPUS ERYTHEMATOSUS [None]
